FAERS Safety Report 7643809-3 (Version None)
Quarter: 2011Q3

REPORT INFORMATION
  Report Type: 
  Country: None (occurrence: None)
  Receive Date: 20110729
  Receipt Date: 20110721
  Transmission Date: 20111222
  Serious: Yes (Hospitalization)
  Sender: FDA-Public Use
  Company Number: JP-BAYER-200911453BYL

PATIENT
  Age: 74 Year
  Sex: Male
  Weight: 48 kg

DRUGS (11)
  1. METHYCOBAL [Concomitant]
     Indication: PRESBYACUSIS
     Dosage: SINCE BEFORE ADMINISTRATION, DOSE PER TREATMENT DAY:1500UG
     Route: 048
     Dates: start: 20090323
  2. MAGNESIUM OXIDE [Concomitant]
     Indication: CONSTIPATION PROPHYLAXIS
     Dosage: SINCE BEFORE ADMINSITRATION,DOSE PER TREATMENT DAY:1G
     Route: 048
  3. RIZE [Concomitant]
     Indication: PROPHYLAXIS
     Dosage: SINCE BEFORE ADMINSITRATION, DOSE PER TREATMENT DAY:15MG
     Route: 048
  4. MUCODYNE [Concomitant]
     Indication: PRODUCTIVE COUGH
     Dosage: 750 MG (DAILY DOSE), , ORAL
     Route: 048
     Dates: start: 20090317
  5. LANIRAPID [Concomitant]
     Dosage: SINCE BEFORE ADMINISTRATION, DOSE PER TREATMENT DAY: 0.100MG
     Route: 048
  6. ADENOSINE [Concomitant]
     Indication: VENOUS INSUFFICIENCY
  7. SORAFANIB [Suspect]
     Indication: RENAL CELL CARCINOMA
     Dosage: 400 MG, BID
     Route: 048
     Dates: start: 20090317, end: 20090421
  8. ADENOSINE [Concomitant]
     Indication: PRESBYACUSIS
     Dosage: SINCE BEFORE ADMINSITRATION, DOSE PER TREATMENT DAY:100MG
     Route: 048
     Dates: start: 20090323
  9. ZOLPIDEM [Concomitant]
     Indication: PROPHYLAXIS
     Dosage: SINCE BEFORE ADMINSITRATION, DOSE PER TREATMENT DAY:10MG
     Route: 048
  10. METHYCOBAL [Concomitant]
     Indication: VITAMIN SUPPLEMENTATION
  11. PURSENNID [Concomitant]
     Indication: CONSTIPATION PROPHYLAXIS
     Dosage: SINCE BEFORE ADMINSITRATION, DOSE PER TREATMENT DAY: 24MG
     Route: 048

REACTIONS (9)
  - ILEUS [None]
  - HYPERTENSION [None]
  - VOMITING [None]
  - ABDOMINAL PAIN [None]
  - DYSPHONIA [None]
  - PRESBYACUSIS [None]
  - BLOOD SODIUM DECREASED [None]
  - DEHYDRATION [None]
  - BLOOD THYROID STIMULATING HORMONE INCREASED [None]
